FAERS Safety Report 9714570 (Version 1)
Quarter: 2013Q4

REPORT INFORMATION
  Report Type: Spontaneous
  Country: KR (occurrence: None)
  Receive Date: 20131125
  Receipt Date: 20131125
  Transmission Date: 20140711
  Serious: Yes (Other)
  Sender: FDA-Public Use
  Company Number: 2013-KR-003233

PATIENT
  Age: 68 Year
  Sex: Female

DRUGS (4)
  1. CLOZAPINE [Suspect]
     Indication: SCHIZOPHRENIA
     Route: 048
  2. ZOLPIDEM (ZOLPIDEM TARTRATE) [Concomitant]
  3. LORAZEPAM A (LORAZEPAM) [Concomitant]
  4. AMITRIPTYLINE (AMITRIPITYLINE HYDROCHLORIDE) [Concomitant]

REACTIONS (2)
  - Asterixis [None]
  - Drug level above therapeutic [None]
